FAERS Safety Report 5983569-5 (Version None)
Quarter: 2008Q4

REPORT INFORMATION
  Report Type: 
  Country: None (occurrence: None)
  Receive Date: 20081208
  Receipt Date: 20081126
  Transmission Date: 20090506
  Serious: Yes (Hospitalization)
  Sender: FDA-Public Use
  Company Number: US-ROCHE-598238

PATIENT
  Sex: Male
  Weight: 72.6 kg

DRUGS (1)
  1. CAPECITABINE [Suspect]
     Dosage: DOSE: 1150 MG AM+1150 MG PM; SUCCESSFULLY COMPLETED 6 CYCLES
     Route: 048
     Dates: start: 20080703

REACTIONS (2)
  - BALANCE DISORDER [None]
  - FALL [None]
